FAERS Safety Report 6582610-9 (Version None)
Quarter: 2010Q1

REPORT INFORMATION
  Report Type: 
  Country: None (occurrence: None)
  Receive Date: 20100216
  Receipt Date: 20100208
  Transmission Date: 20100710
  Serious: Yes (Hospitalization)
  Sender: FDA-Public Use
  Company Number: US-ASTRAZENECA-2010SE05543

PATIENT
  Age: 188 Month
  Sex: Male
  Weight: 98.4 kg

DRUGS (5)
  1. SEROQUEL [Suspect]
     Indication: OBSESSIVE-COMPULSIVE DISORDER
     Dosage: LESS THAN 100MG
     Route: 048
     Dates: start: 20080101, end: 20090501
  2. SEROQUEL [Suspect]
     Route: 048
     Dates: start: 20090501, end: 20091225
  3. SEROQUEL [Suspect]
     Route: 048
     Dates: start: 20091201
  4. DEPAKOTE [Concomitant]
  5. PROZAC [Concomitant]

REACTIONS (4)
  - DRUG ADMINISTRATION ERROR [None]
  - EATING DISORDER [None]
  - INTERMITTENT EXPLOSIVE DISORDER [None]
  - SLEEP DISORDER [None]
